FAERS Safety Report 6191716-8 (Version None)
Quarter: 2009Q2

REPORT INFORMATION
  Report Type: 
  Country: None (occurrence: None)
  Receive Date: 20090515
  Receipt Date: 20090504
  Transmission Date: 20091009
  Serious: Yes (Hospitalization, Other)
  Sender: FDA-Public Use
  Company Number: US-JNJFOC-20090500847

PATIENT
  Sex: Female
  Weight: 63.5 kg

DRUGS (5)
  1. REMICADE [Suspect]
     Route: 042
  2. REMICADE [Suspect]
     Route: 042
  3. REMICADE [Suspect]
     Indication: CROHN'S DISEASE
     Route: 042
  4. WELLBUTRIN [Concomitant]
     Indication: DEPRESSION
     Dosage: DURATION= ^SEVERAL MONTHS^
  5. BIRTH CONTROL PILL [Concomitant]
     Indication: ENDOMETRIOSIS

REACTIONS (4)
  - ANTIPHOSPHOLIPID ANTIBODIES POSITIVE [None]
  - OBSTRUCTION GASTRIC [None]
  - PNEUMONIA [None]
  - STAPHYLOCOCCAL INFECTION [None]
